FAERS Safety Report 19585705 (Version 2)
Quarter: 2021Q3

REPORT INFORMATION
  Report Type: Report from Study
  Country: US (occurrence: US)
  Receive Date: 20210720
  Receipt Date: 20210730
  Transmission Date: 20211014
  Serious: Yes (Hospitalization)
  Sender: FDA-Public Use
  Company Number: US-PFIZER INC-2021895208

PATIENT
  Age: 37 Year
  Sex: Female
  Weight: 48.07 kg

DRUGS (64)
  1. HUMALOG [Concomitant]
     Active Substance: INSULIN LISPRO
     Indication: HYPERGLYCAEMIA
     Dosage: LIQ, UNITS PER SLIDING SCALE , AS NEEDED
     Route: 058
     Dates: start: 201806
  2. ZOFRAN [Concomitant]
     Active Substance: ONDANSETRON HYDROCHLORIDE
     Indication: NAUSEA
     Dosage: 8 MG, AS NEEDED
     Route: 048
     Dates: start: 20190213, end: 20210609
  3. MAXIPIME [Concomitant]
     Active Substance: CEFEPIME HYDROCHLORIDE
     Indication: BILIARY OBSTRUCTION
     Dosage: 2 G, AS NEEDED, LIQUID, IN SODIUM CHLORIDE 0.9% 100ML
     Route: 042
     Dates: start: 20210624, end: 20210626
  4. CIPRO [Concomitant]
     Active Substance: CIPROFLOXACIN HYDROCHLORIDE
     Indication: BILIARY OBSTRUCTION
     Dosage: 500 MG, 2X/DAY
     Route: 048
     Dates: start: 20210616, end: 20210619
  5. NEURONTIN [Concomitant]
     Active Substance: GABAPENTIN
     Indication: BILIARY OBSTRUCTION
     Dosage: 300 MG, 3X/DAY
     Route: 048
     Dates: start: 20210618
  6. LACTATED RINGERS SOLUTION [Concomitant]
     Active Substance: CALCIUM CHLORIDE\POTASSIUM CHLORIDE\SODIUM CHLORIDE\SODIUM LACTATE
     Indication: BILIARY OBSTRUCTION
     Dosage: 1000 ML, SINGLE, LIQUID
     Route: 042
     Dates: start: 20210610, end: 20210610
  7. FLAGYL [Concomitant]
     Active Substance: METRONIDAZOLE\METRONIDAZOLE HYDROCHLORIDE
     Indication: BILIARY OBSTRUCTION
     Dosage: 500 MG, 2X/DAY
     Route: 048
     Dates: start: 20210616, end: 20210619
  8. OMNIPAQUE [Concomitant]
     Active Substance: IOHEXOL
     Indication: BILIARY OBSTRUCTION
     Dosage: 150 ML, SINGLE, 350MG IODINE/ML LIQUID
     Route: 042
     Dates: start: 20210623, end: 20210623
  9. SIMETHICONE (DIMETHICONE) [Concomitant]
     Active Substance: DIMETHICONE
     Indication: BILIARY OBSTRUCTION
     Dosage: 80 MG, AS NEEDED
     Route: 048
     Dates: start: 20210612, end: 20210625
  10. TALAZOPARIB. [Suspect]
     Active Substance: TALAZOPARIB
     Indication: PANCREATIC CARCINOMA
     Dosage: 1 MG, 1X/DAY
     Route: 048
     Dates: start: 20210707, end: 20210711
  11. OSCAL D [Concomitant]
     Active Substance: CALCIUM CARBONATE\CHOLECALCIFEROL
     Indication: SUPPLEMENTATION THERAPY
     Dosage: 2 TABLETS (400 UMITS), 1X/DAY
     Route: 048
     Dates: start: 20201026
  12. MS CONTIN [Concomitant]
     Active Substance: MORPHINE SULFATE
     Indication: PAIN
     Dosage: 15 MG, 12HR TAB, AS NEEDED
     Route: 048
     Dates: start: 202012
  13. MS CONTIN [Concomitant]
     Active Substance: MORPHINE SULFATE
     Indication: BILIARY OBSTRUCTION
     Dosage: 45 MG, AS NEEDED
     Route: 048
     Dates: start: 20210619, end: 20210627
  14. ZYPREXA [Concomitant]
     Active Substance: OLANZAPINE
     Dosage: 5 MG, QHS
     Route: 048
     Dates: start: 20210203, end: 20210426
  15. ROXICODONE [Concomitant]
     Active Substance: OXYCODONE HYDROCHLORIDE
     Indication: BILIARY OBSTRUCTION
     Dosage: 15 MG, AS NEEDED, IMMEDIATE RELEASE
     Route: 048
     Dates: start: 20210618, end: 20210628
  16. TYLENOL [Concomitant]
     Active Substance: ACETAMINOPHEN
     Indication: BILIARY OBSTRUCTION
     Dosage: 650 MG, AS NEEDED
     Route: 048
     Dates: start: 20210613, end: 20210627
  17. ZITHROMAX [Concomitant]
     Active Substance: AZITHROMYCIN DIHYDRATE
     Indication: BILIARY OBSTRUCTION
     Dosage: 500 MG, SINGLE
     Route: 048
     Dates: start: 20210625, end: 20210625
  18. DECADRON [Concomitant]
     Active Substance: DEXAMETHASONE
     Indication: BILIARY OBSTRUCTION
     Dosage: 4 MG, 2X/DAY
     Route: 048
     Dates: start: 20210616, end: 20210620
  19. LOVENOX [LEVOFLOXACIN] [Concomitant]
     Active Substance: LEVOFLOXACIN
     Indication: PROPHYLAXIS
     Dosage: 40 MG/0.4 ML, SINGLE, 1 SYRINGE, LIQUID
     Route: 058
     Dates: start: 20210611, end: 20210611
  20. LEVAQUIN [Concomitant]
     Active Substance: LEVOFLOXACIN
     Indication: BILIARY OBSTRUCTION
     Dosage: 750 MG, 1X/DAY
     Route: 048
     Dates: start: 20210627, end: 20210628
  21. PHENOL. [Concomitant]
     Active Substance: PHENOL
     Indication: OROPHARYNGEAL PAIN
     Dosage: 1 SPRAY, AS NEEDED, LIQUID
     Route: 048
     Dates: start: 20210611, end: 20210627
  22. VANCOCIN [Concomitant]
     Active Substance: VANCOMYCIN HYDROCHLORIDE
     Indication: BILIARY OBSTRUCTION
     Dosage: 1250 MG, SINGLE, 1,250MG IN SODIUM CHLORIDE 0.9% 250ML IVPB, LIQUID
     Route: 042
     Dates: start: 20210624, end: 20210624
  23. BASAGLAR [Concomitant]
     Active Substance: INSULIN GLARGINE
     Indication: HYPERGLYCAEMIA
     Dosage: 15 IU, 1X/DAY (LIQ, KWIKPEN UNITS ? 100 INSULIN)
     Route: 058
     Dates: start: 201806
  24. MSIR [Concomitant]
     Active Substance: MORPHINE SULFATE
     Indication: PAIN
     Dosage: 15 MG, AS NEEDED
     Route: 048
     Dates: start: 202012
  25. LODINE [Concomitant]
     Active Substance: ETODOLAC
     Indication: MUSCLE SPASMS
     Dosage: 300 MG, AS NEEDED
     Route: 048
     Dates: start: 20210502, end: 20210609
  26. ORAMORPH SR SUSTAINED RELEASE [Concomitant]
     Active Substance: MORPHINE SULFATE
     Dosage: 60 MG, 1X/DAY, SR
     Route: 048
     Dates: start: 20210627, end: 20210628
  27. CHLORASEPTIC SORE THROAT [BENZOCAINE;MENTHOL] [Concomitant]
     Active Substance: BENZOCAINE\MENTHOL
     Indication: BILIARY OBSTRUCTION
     Dosage: 1 LOZENGE, AS NEEDED
     Route: 048
     Dates: start: 20210611, end: 20210628
  28. DULCOLAX (BISACODYL) [Concomitant]
     Active Substance: BISACODYL
     Indication: BILIARY OBSTRUCTION
     Dosage: 10 MG, SINGLE
     Route: 054
     Dates: start: 20210614, end: 20210614
  29. LANTUS [Concomitant]
     Active Substance: INSULIN GLARGINE
     Indication: HYPERGLYCAEMIA
     Dosage: UNITS PER SLIDING SCALE, AS NEEDED, LIQUID
     Route: 058
     Dates: start: 20210610, end: 20210628
  30. HUMULIN R [Concomitant]
     Active Substance: INSULIN HUMAN
     Indication: HYPERGLYCAEMIA
     Dosage: 2 IU, SINGLE, LIQUID
     Route: 058
     Dates: start: 20210617, end: 20210617
  31. FLAGYL [Concomitant]
     Active Substance: METRONIDAZOLE\METRONIDAZOLE HYDROCHLORIDE
     Indication: BILIARY OBSTRUCTION
     Dosage: 500 MG, 2X/DAY, IN SODIUM CHLORIDE, ISO?OSM IVPB, LIQUID
     Route: 042
     Dates: start: 20210624, end: 20210625
  32. ZOSYN [Concomitant]
     Active Substance: PIPERACILLIN SODIUM\TAZOBACTAM SODIUM
     Indication: BILIARY OBSTRUCTION
     Dosage: 3.375 G, 3X/DAY, IN SODIUM CHLORIDE 0.9% 100 ML ADV IVPB, LIQUID
     Route: 042
     Dates: start: 20210612, end: 20210624
  33. SENOKOT [Concomitant]
     Active Substance: SENNOSIDES
     Indication: BILIARY OBSTRUCTION
     Dosage: 1 TABLET, AS NEEDED
     Route: 048
     Dates: start: 20210609, end: 20210624
  34. VITAMIN B1 [THIAMINE MONONITRATE] [Concomitant]
     Indication: BILIARY OBSTRUCTION
     Dosage: 100 MG, 1X/DAY
     Route: 048
     Dates: start: 20210617
  35. CREON [Concomitant]
     Active Substance: PANCRELIPASE AMYLASE\PANCRELIPASE LIPASE\PANCRELIPASE PROTEASE
     Indication: PROPHYLAXIS
  36. KLOR?CON [Concomitant]
     Active Substance: POTASSIUM CHLORIDE
     Indication: HYPOKALAEMIA
     Dosage: 20 MEQ, AS NEEDED, M20
     Route: 048
     Dates: start: 20201229
  37. XARELTO [Concomitant]
     Active Substance: RIVAROXABAN
     Indication: PROPHYLAXIS
     Dosage: 20 MG, 1X/DAY
     Route: 048
     Dates: start: 20210426
  38. DILAUDID [Concomitant]
     Active Substance: HYDROMORPHONE HYDROCHLORIDE
     Dosage: 0.5 MG, 2X/DAY, LIQUID
     Route: 042
     Dates: start: 20210621, end: 20210621
  39. ORAMORPH SR SUSTAINED RELEASE [Concomitant]
     Active Substance: MORPHINE SULFATE
     Indication: BILIARY OBSTRUCTION
     Dosage: 60 MG, 2X/DAY, SR 12HR
     Route: 048
     Dates: start: 20210627, end: 20210628
  40. K PHOS NEUTRAL [Concomitant]
     Active Substance: POTASSIUM PHOSPHATE, MONOBASIC\SODIUM PHOSPHATE, DIBASIC, ANHYDROUS\SODIUM PHOSPHATE, MONOBASIC, MONOHYDRATE
     Indication: BILIARY OBSTRUCTION
     Dosage: 250 MG, 3X/DAY
     Route: 048
     Dates: start: 20210615, end: 20210615
  41. KEPPRA [Concomitant]
     Active Substance: LEVETIRACETAM
     Indication: SEIZURE
     Dosage: 1000 MG, 2X/DAY
     Route: 048
     Dates: start: 202103
  42. KLOR?CON [Concomitant]
     Active Substance: POTASSIUM CHLORIDE
     Indication: BILIARY OBSTRUCTION
     Dosage: 40 MEQ, SINGLE, M20
     Route: 048
     Dates: start: 20210614, end: 20210614
  43. COLACE [Concomitant]
     Active Substance: DOCUSATE SODIUM
     Indication: BILIARY OBSTRUCTION
     Dosage: 100 MG, DAILY, PM
     Route: 048
     Dates: start: 20210613, end: 20210625
  44. LOVENOX [LEVOFLOXACIN] [Concomitant]
     Active Substance: LEVOFLOXACIN
     Dosage: 60 MG/0.6 ML, SINGLE, 1 SYRINGE, LIQUID
     Route: 058
     Dates: start: 20210612, end: 20210613
  45. LACTATED RINGERS SOLUTION [Concomitant]
     Active Substance: CALCIUM CHLORIDE\POTASSIUM CHLORIDE\SODIUM CHLORIDE\SODIUM LACTATE
     Dosage: 500 ML, AS NEEDED, LIQUID
     Route: 042
     Dates: start: 20210611, end: 20210625
  46. ANUSOL HC [Concomitant]
     Active Substance: HYDROCORTISONE
     Indication: HAEMORRHOIDS
     Dosage: 2.5 %, 1X/DAY
     Route: 061
     Dates: start: 20210401
  47. DILAUDID [Concomitant]
     Active Substance: HYDROMORPHONE HYDROCHLORIDE
     Indication: BILIARY OBSTRUCTION
     Dosage: 1 MG, AS NEEDED, LIQUID
     Route: 042
     Dates: start: 20210609, end: 20210628
  48. TESSALON [Concomitant]
     Active Substance: BENZONATATE
     Indication: BILIARY OBSTRUCTION
     Dosage: 100 MG, SINGLE
     Route: 048
     Dates: start: 20210610, end: 20210610
  49. FLEXERIL [Concomitant]
     Active Substance: CYCLOBENZAPRINE HYDROCHLORIDE
     Indication: MUSCLE SPASMS
     Dosage: 5 MG, AS NEEDED
     Route: 048
     Dates: start: 20210419, end: 20210625
  50. ORAMORPH SR SUSTAINED RELEASE [Concomitant]
     Active Substance: MORPHINE SULFATE
     Dosage: 30 MG, 2X/DAY, SR
     Route: 048
     Dates: start: 20210614, end: 20210622
  51. FOLIC ACID. [Concomitant]
     Active Substance: FOLIC ACID
     Indication: BILIARY OBSTRUCTION
     Dosage: 1 MG, 1X/DAY
     Route: 048
     Dates: start: 20210617
  52. GADAVIST [Concomitant]
     Active Substance: GADOBUTROL
     Indication: BILIARY OBSTRUCTION
     Dosage: 5 ML, SINGLE, LIQUID
     Route: 042
     Dates: start: 20210617, end: 20210617
  53. DILAUDID [Concomitant]
     Active Substance: HYDROMORPHONE HYDROCHLORIDE
     Indication: BILIARY OBSTRUCTION
     Dosage: 1 MG, SINGLE
     Route: 048
     Dates: start: 20210612, end: 20210612
  54. VANCOCIN [Concomitant]
     Active Substance: VANCOMYCIN HYDROCHLORIDE
     Dosage: 750 MG, SINGLE, 750MG IN SODIUM CHLORIDE 0.9% 150ML IVPB, LIQUID
     Route: 042
     Dates: start: 20210624, end: 20210625
  55. CREON [Concomitant]
     Active Substance: PANCRELIPASE AMYLASE\PANCRELIPASE LIPASE\PANCRELIPASE PROTEASE
     Indication: DECREASED APPETITE
     Dosage: 3 CAPSULE, 4X/DAY (76000 TO 120000 UNIT CPDR)
     Route: 048
     Dates: start: 2020
  56. COMPAZINE [Concomitant]
     Active Substance: PROCHLORPERAZINE MALEATE
     Indication: NAUSEA
     Dosage: 10 MG, AS NEEDED
     Route: 048
     Dates: start: 20210421
  57. ZOMETA [Concomitant]
     Active Substance: ZOLEDRONIC ACID
     Indication: METASTASES TO BONE
     Dosage: 4 MG, SINGLE, LIQ
     Route: 042
     Dates: start: 20210603, end: 20210603
  58. DILAUDID [Concomitant]
     Active Substance: HYDROMORPHONE HYDROCHLORIDE
     Dosage: 2 MG, SINGLE, LIQUID
     Route: 042
     Dates: start: 20210626, end: 20210626
  59. ROBITUSSIN (GUAIFENESIN) [Concomitant]
     Active Substance: GUAIFENESIN
     Indication: BILIARY OBSTRUCTION
     Dosage: 10 ML, 2X/DAY, 100MG/5ML
     Route: 048
     Dates: start: 20210612, end: 20210626
  60. LIDODERM [Concomitant]
     Active Substance: LIDOCAINE
     Indication: BILIARY OBSTRUCTION
     Dosage: 1 PATCH, 1X/DAY
     Route: 061
     Dates: start: 20210621, end: 20210626
  61. EMLA [Concomitant]
     Active Substance: LIDOCAINE\PRILOCAINE
     Indication: BILIARY OBSTRUCTION
     Dosage: UNK, AS NEEDED
     Route: 061
     Dates: start: 20210612, end: 20210618
  62. OMNIPAQUE [Concomitant]
     Active Substance: IOHEXOL
     Dosage: 120 ML, SINGLE, 350MG IODINE/ML LIQUID
     Route: 042
     Dates: start: 20210610, end: 20210610
  63. ZOFRAN [Concomitant]
     Active Substance: ONDANSETRON HYDROCHLORIDE
     Indication: BILIARY OBSTRUCTION
     Dosage: 4 MG, SINGLE, LIQUID
     Route: 042
     Dates: start: 20210617, end: 20210617
  64. MIRALAX [Concomitant]
     Active Substance: POLYETHYLENE GLYCOL 3350
     Indication: BILIARY OBSTRUCTION
     Dosage: 17 G, 1X/DAY, POWDER
     Route: 048
     Dates: start: 20210614, end: 20210615

REACTIONS (2)
  - Pneumonia [Unknown]
  - Infection [Unknown]
